FAERS Safety Report 20350862 (Version 1)
Quarter: 2022Q1

REPORT INFORMATION
  Report Type: Report from Study
  Country: US (occurrence: US)
  Receive Date: 20220119
  Receipt Date: 20220119
  Transmission Date: 20220423
  Serious: Yes (Other)
  Sender: FDA-Public Use
  Company Number: US-KOREA IPSEN Pharma-2022-01034

PATIENT
  Sex: Male

DRUGS (1)
  1. SOMATULINE DEPOT [Suspect]
     Active Substance: LANREOTIDE ACETATE
     Indication: Metastatic carcinoid tumour
     Dosage: 120MG/ 0.5ML
     Route: 058
     Dates: start: 201909

REACTIONS (3)
  - Hepatic neoplasm [Not Recovered/Not Resolved]
  - Injection site mass [Recovered/Resolved]
  - Wrong technique in product usage process [Unknown]
